FAERS Safety Report 6811367-9 (Version None)
Quarter: 2010Q2

REPORT INFORMATION
  Report Type: 
  Country: None (occurrence: None)
  Receive Date: 20100629
  Receipt Date: 20100629
  Transmission Date: 20101027
  Serious: Yes (Hospitalization)
  Sender: FDA-Public Use
  Company Number: None

PATIENT
  Sex: Female
  Weight: 88.905 kg

DRUGS (1)
  1. PRILOSEC [Suspect]
     Indication: HYPERCHLORHYDRIA
     Dosage: ONE CAPSULE TWICE A DAY TWICE A DAY
     Dates: start: 20100202, end: 20100519

REACTIONS (2)
  - HEART RATE INCREASED [None]
  - PNEUMONIA [None]
